FAERS Safety Report 13898017 (Version 1)
Quarter: 2017Q3

REPORT INFORMATION
  Report Type: Spontaneous
  Country: US (occurrence: US)
  Receive Date: 20170823
  Receipt Date: 20170823
  Transmission Date: 20171127
  Serious: Yes (Other)
  Sender: FDA-Public Use
  Company Number: US-PFIZER INC-2017360902

PATIENT
  Age: 56 Year
  Sex: Female
  Weight: 83.91 kg

DRUGS (2)
  1. IBUPROFEN. [Concomitant]
     Active Substance: IBUPROFEN
     Dosage: UNK
  2. XELJANZ XR [Suspect]
     Active Substance: TOFACITINIB CITRATE
     Indication: RHEUMATOID ARTHRITIS
     Dosage: 11 MG, 1X/DAY
     Dates: start: 2017, end: 2017

REACTIONS (7)
  - Amnesia [Unknown]
  - Weight decreased [Unknown]
  - Cerebrovascular accident [Unknown]
  - Headache [Recovered/Resolved]
  - Urinary tract infection [Recovering/Resolving]
  - Decreased appetite [Unknown]
  - Influenza like illness [Recovered/Resolved]

NARRATIVE: CASE EVENT DATE: 2017
